FAERS Safety Report 4474396-9 (Version None)
Quarter: 2004Q4

REPORT INFORMATION
  Report Type: 
  Country: None (occurrence: None)
  Receive Date: 20041014
  Receipt Date: 20041006
  Transmission Date: 20050328
  Serious: Yes (Hospitalization, Disabling, Other)
  Sender: FDA-Public Use
  Company Number: US-MERCK-0410USA00928

PATIENT
  Age: 65 Year
  Sex: Female

DRUGS (5)
  1. NORVASC [Concomitant]
     Route: 065
  2. ATENOLOL [Concomitant]
     Route: 065
  3. VASOTEC [Concomitant]
     Route: 065
  4. LASIX [Concomitant]
     Route: 065
  5. VIOXX [Suspect]
     Indication: MONARTHRITIS
     Route: 048
     Dates: start: 20031001, end: 20040101

REACTIONS (5)
  - CARDIAC DISORDER [None]
  - EJECTION FRACTION DECREASED [None]
  - INJURY [None]
  - MYOCARDIAL INFARCTION [None]
  - OEDEMA PERIPHERAL [None]
